FAERS Safety Report 8481346-7 (Version None)
Quarter: 2012Q2

REPORT INFORMATION
  Report Type: 
  Country: None (occurrence: None)
  Receive Date: 20120626
  Receipt Date: 20120626
  Transmission Date: 20120825
  Serious: Yes (Hospitalization)
  Sender: FDA-Public Use
  Company Number: None

PATIENT
  Age: 48 Year
  Sex: Male
  Weight: 123.1 kg

DRUGS (1)
  1. RITUXAN [Suspect]
     Indication: MYOSITIS
     Dosage: 900 MG ONCE IV
     Route: 042
     Dates: start: 20120614, end: 20120614

REACTIONS (1)
  - SMALL INTESTINAL OBSTRUCTION [None]
